FAERS Safety Report 8370347-5 (Version None)
Quarter: 2012Q2

REPORT INFORMATION
  Report Type: 
  Country: None (occurrence: None)
  Receive Date: 20120518
  Receipt Date: 20111020
  Transmission Date: 20120825
  Serious: No
  Sender: FDA-Public Use
  Company Number: US-ASTRAZENECA-2011SE70535

PATIENT
  Sex: Male

DRUGS (3)
  1. DEXLANSOPRAZOLE [Suspect]
     Indication: FLATULENCE
     Route: 048
     Dates: start: 20111017, end: 20111019
  2. PRILOSEC OTC [Suspect]
     Route: 048
     Dates: start: 20111020
  3. PRILOSEC OTC [Suspect]
     Indication: FLATULENCE
     Route: 048
     Dates: start: 20111015, end: 20111017

REACTIONS (3)
  - CONDITION AGGRAVATED [None]
  - OFF LABEL USE [None]
  - PALPITATIONS [None]
